FAERS Safety Report 8580449-6 (Version None)
Quarter: 2012Q3

REPORT INFORMATION
  Report Type: 
  Country: None (occurrence: None)
  Receive Date: 20120808
  Receipt Date: 20120730
  Transmission Date: 20120928
  Serious: Yes (Hospitalization)
  Sender: FDA-Public Use
  Company Number: JP-ROCHE-1080207

PATIENT
  Sex: Male
  Weight: 57 kg

DRUGS (12)
  1. LOPERAMIDE HCL [Suspect]
     Indication: DIARRHOEA
     Route: 048
     Dates: start: 20120606, end: 20120609
  2. NEOAMIYU [Suspect]
     Indication: PRODUCT USED FOR UNKNOWN INDICATION
     Route: 042
     Dates: start: 20111101, end: 20120611
  3. CARVEDILOL [Suspect]
     Indication: CARDIAC FAILURE CONGESTIVE
     Route: 048
     Dates: start: 20100608
  4. SHAKUYAKU-KANZO-TO [Concomitant]
     Indication: PROPHYLAXIS
     Route: 048
     Dates: start: 20120104, end: 20120611
  5. WARKMIN [Concomitant]
     Indication: VITAMIN D ABNORMAL
     Route: 048
     Dates: start: 20100608
  6. DEPAS [Concomitant]
     Indication: INSOMNIA
     Route: 048
     Dates: start: 20100608
  7. MIRCERA [Suspect]
     Indication: NEPHROGENIC ANAEMIA
     Route: 042
     Dates: start: 20120601
  8. THIODERON [Concomitant]
     Indication: ANAEMIA
     Route: 048
     Dates: start: 20100608
  9. PRECIPITATED CALCIUM CARBONATE [Concomitant]
     Indication: BLOOD PHOSPHORUS INCREASED
     Route: 048
     Dates: start: 20100608, end: 20120611
  10. FOLIC ACID [Concomitant]
     Indication: ANAEMIA
     Route: 048
     Dates: start: 20100608
  11. ASPIRIN [Concomitant]
     Indication: PROPHYLAXIS
     Route: 048
     Dates: start: 20100608
  12. ALLOPURINOL [Concomitant]
     Indication: HYPERURICAEMIA
     Route: 048
     Dates: start: 20100608

REACTIONS (2)
  - DIARRHOEA [None]
  - HEPATITIS FULMINANT [None]
